FAERS Safety Report 5897596-X (Version None)
Quarter: 2008Q3

REPORT INFORMATION
  Report Type: 
  Country: None (occurrence: None)
  Receive Date: 20080925
  Receipt Date: 20080917
  Transmission Date: 20090109
  Serious: Yes (Hospitalization)
  Sender: FDA-Public Use
  Company Number: JP-ABBOTT-03P-087-0238240-00

PATIENT
  Sex: Male

DRUGS (13)
  1. KALETRA [Suspect]
     Indication: HIV INFECTION
     Route: 048
     Dates: start: 20021220, end: 20040617
  2. KALETRA [Suspect]
     Route: 048
     Dates: start: 20040710, end: 20061114
  3. KALETRA [Suspect]
     Indication: HIV INFECTION
     Route: 048
     Dates: start: 20061115
  4. ZIDOVUDINE [Suspect]
     Indication: HIV INFECTION
     Route: 048
     Dates: start: 20021220, end: 20040617
  5. ZIDOVUDINE [Suspect]
     Route: 048
     Dates: start: 20040710
  6. LAMIVUDINE [Suspect]
     Indication: HIV INFECTION
     Route: 048
     Dates: start: 20021220, end: 20040617
  7. LAMIVUDINE [Suspect]
     Route: 048
     Dates: start: 20040710
  8. ALLOPURINOL [Suspect]
     Indication: HYPERURICAEMIA
     Route: 048
     Dates: start: 20030214, end: 20030508
  9. ALLOPURINOL [Suspect]
     Route: 048
     Dates: start: 20030509, end: 20050406
  10. METHIMAZOLE [Suspect]
     Indication: HYPERTHYROIDISM
     Route: 048
     Dates: start: 20050401
  11. METHIMAZOLE [Suspect]
     Route: 048
     Dates: start: 20040731, end: 20040917
  12. METHIMAZOLE [Suspect]
     Route: 048
     Dates: start: 20040918, end: 20041001
  13. BACTRIM [Concomitant]
     Indication: ANTIFUNGAL PROPHYLAXIS
     Route: 048
     Dates: start: 20021220

REACTIONS (10)
  - ANAEMIA MACROCYTIC [None]
  - BLOOD ALKALINE PHOSPHATASE INCREASED [None]
  - HYPERLACTACIDAEMIA [None]
  - HYPERTHYROIDISM [None]
  - HYPERTRIGLYCERIDAEMIA [None]
  - HYPERURICAEMIA [None]
  - HYPOKALAEMIA [None]
  - LIVER DISORDER [None]
  - PARALYSIS [None]
  - PLATELET COUNT DECREASED [None]
